FAERS Safety Report 12490012 (Version 1)
Quarter: 2016Q2

REPORT INFORMATION
  Report Type: Spontaneous
  Country: US (occurrence: US)
  Receive Date: 20160622
  Receipt Date: 20160622
  Transmission Date: 20160815
  Serious: Yes (Other)
  Sender: FDA-Public Use
  Company Number: US-TEVA-669544USA

PATIENT
  Age: 53 Year
  Sex: Female

DRUGS (13)
  1. WELLBUTRIN [Concomitant]
     Active Substance: BUPROPION HYDROCHLORIDE
  2. BENADRYL [Concomitant]
     Active Substance: DIPHENHYDRAMINE HYDROCHLORIDE
  3. HYOSCYAMINE. [Concomitant]
     Active Substance: HYOSCYAMINE
  4. COPAXONE [Suspect]
     Active Substance: GLATIRAMER ACETATE
     Route: 058
  5. GABAPENTIN. [Concomitant]
     Active Substance: GABAPENTIN
  6. ZOMIG [Concomitant]
     Active Substance: ZOLMITRIPTAN
  7. ACYCLOVIR. [Concomitant]
     Active Substance: ACYCLOVIR
  8. FISH OIL [Concomitant]
     Active Substance: FISH OIL
  9. SPIRIVA [Concomitant]
     Active Substance: TIOTROPIUM BROMIDE MONOHYDRATE
  10. MULTI VITAMIN [Concomitant]
     Active Substance: VITAMINS
  11. DIPHENHYDRAMIN [Concomitant]
     Active Substance: DIPHENHYDRAMINE
  12. NAPROSYN [Concomitant]
     Active Substance: NAPROXEN
  13. PULMICORT TURBUHALER [Concomitant]
     Active Substance: BUDESONIDE

REACTIONS (1)
  - Multiple sclerosis relapse [Unknown]

NARRATIVE: CASE EVENT DATE: 20160604
